FAERS Safety Report 12380733 (Version 1)
Quarter: 2016Q2

REPORT INFORMATION
  Report Type: Spontaneous
  Country: IL (occurrence: IL)
  Receive Date: 20160518
  Receipt Date: 20160518
  Transmission Date: 20160815
  Serious: Yes (Death, Hospitalization, Other)
  Sender: FDA-Public Use
  Company Number: IL-SHIRE-IL201605799

PATIENT
  Age: 78 Year
  Sex: Female

DRUGS (1)
  1. FOSRENOL [Suspect]
     Active Substance: LANTHANUM CARBONATE
     Dosage: 1000 MG, UNKNOWN (3/DAY)
     Route: 048

REACTIONS (4)
  - Oedema peripheral [Unknown]
  - Death [Fatal]
  - Wound [Unknown]
  - Calcinosis [Unknown]

NARRATIVE: CASE EVENT DATE: 201604
